FAERS Safety Report 8817593 (Version 1)
Quarter: 2012Q4

REPORT INFORMATION
  Report Type: 
  Country: DZ (occurrence: DZ)
  Receive Date: 20121001
  Receipt Date: 20121001
  Transmission Date: 20130627
  Serious: Yes (Other)
  Sender: FDA-Public Use
  Company Number: DZ-SANOFI-AVENTIS-2012SA071599

PATIENT
  Age: 65 Year
  Sex: Male

DRUGS (1)
  1. ELOXATIN [Suspect]
     Indication: COLORECTAL CANCER
     Dosage: route: IV perf
     Dates: start: 20120607, end: 20120722

REACTIONS (3)
  - Paraparesis [Unknown]
  - Laryngospasm [Unknown]
  - Aphasia [Unknown]
